FAERS Safety Report 8548029 (Version 2)
Quarter: 2013Q1

REPORT INFORMATION
  Report Type: Spontaneous
  Country: US (occurrence: US)
  Receive Date: 20120504
  Receipt Date: 20130318
  Transmission Date: 20140127
  Serious: Yes (Other)
  Sender: FDA-Public Use
  Company Number: US-RB-039821-12

PATIENT
  Age: 1 Day
  Sex: Male
  Weight: 1.84 kg

DRUGS (6)
  1. BUPRENORPHINE [Suspect]
     Indication: DRUG DEPENDENCE
     Route: 064
     Dates: start: 20110808, end: 20120322
  2. SUBOXONE TABLET [Suspect]
     Indication: DRUG DEPENDENCE
     Route: 064
     Dates: start: 20110706, end: 20110807
  3. VITAMIN D3 [Suspect]
     Indication: PRODUCT USED FOR UNKNOWN INDICATION
     Route: 064
     Dates: start: 201101
  4. LEVOTHYROXINE [Suspect]
     Indication: HYPOTHYROIDISM
     Route: 064
  5. CALCIUM [Suspect]
     Indication: MATERNAL EXPOSURE DURING PREGNANCY
     Dosage: 1ST TRIMESTER
     Route: 064
  6. PRENATAL VITAMINS [Suspect]
     Indication: MATERNAL EXPOSURE DURING PREGNANCY
     Dosage: DOSING DETAILS NOT PROVIDED; 1ST TRIMESTER
     Route: 064

REACTIONS (2)
  - Foetal exposure during pregnancy [Recovered/Resolved]
  - Low birth weight baby [Recovered/Resolved]
